FAERS Safety Report 6490821-6 (Version None)
Quarter: 2009Q4

REPORT INFORMATION
  Report Type: 
  Country: None (occurrence: None)
  Receive Date: 20091211
  Receipt Date: 20091203
  Transmission Date: 20100525
  Serious: Yes (Hospitalization)
  Sender: FDA-Public Use
  Company Number: ID-BRACCO-000002

PATIENT
  Age: 48 Year
  Sex: Male

DRUGS (3)
  1. IOPAMIRO [Suspect]
     Indication: COMPUTERISED TOMOGRAM
     Route: 042
     Dates: start: 20091126, end: 20091126
  2. INSULIN INJECTION [Concomitant]
  3. NORMAL SALINE [Concomitant]
     Route: 042
     Dates: start: 20091126, end: 20091126

REACTIONS (2)
  - DYSPNOEA [None]
  - STEVENS-JOHNSON SYNDROME [None]
